FAERS Safety Report 18157592 (Version 1)
Quarter: 2020Q3

REPORT INFORMATION
  Report Type: Spontaneous
  Country: IT (occurrence: IT)
  Receive Date: 20200817
  Receipt Date: 20200817
  Transmission Date: 20201103
  Serious: Yes (Hospitalization)
  Sender: FDA-Public Use
  Company Number: IT-TEVA-2020-IT-1814543

PATIENT
  Age: 51 Year
  Sex: Male

DRUGS (3)
  1. RISPERIDONE. [Suspect]
     Active Substance: RISPERIDONE
     Indication: MENTAL DISORDER
     Dosage: 2 GRAM
     Route: 048
     Dates: start: 20200724, end: 20200729
  2. DELORAZEPAM [Concomitant]
     Active Substance: DELORAZEPAM
     Dosage: 1 MG
     Route: 048
     Dates: start: 20200724, end: 20200729
  3. DEPAKIN 500 MG COMPRESSE GASTRORESISTENTI [Interacting]
     Active Substance: VALPROATE SODIUM
     Indication: MENTAL DISORDER
     Dosage: 1 GRAM
     Route: 048
     Dates: start: 20200724, end: 20200729

REACTIONS (3)
  - Hypotonia [Recovering/Resolving]
  - Drug interaction [Recovering/Resolving]
  - Sedation [Recovering/Resolving]

NARRATIVE: CASE EVENT DATE: 20200728
